FAERS Safety Report 12008157 (Version 1)
Quarter: 2016Q1

REPORT INFORMATION
  Report Type: Spontaneous
  Country: US (occurrence: US)
  Receive Date: 20160205
  Receipt Date: 20160205
  Transmission Date: 20160526
  Serious: Yes (Hospitalization)
  Sender: FDA-Public Use
  Company Number: US-ABBVIE-15K-163-1443009-00

PATIENT
  Age: 41 Year
  Sex: Female

DRUGS (1)
  1. HUMIRA [Suspect]
     Active Substance: ADALIMUMAB
     Indication: CROHN^S DISEASE
     Route: 065
     Dates: start: 201409

REACTIONS (7)
  - Pneumonia [Unknown]
  - Clostridium difficile infection [Unknown]
  - Back pain [Unknown]
  - Pain in extremity [Unknown]
  - Hospitalisation [Unknown]
  - Musculoskeletal pain [Unknown]
  - Neck pain [Unknown]

NARRATIVE: CASE EVENT DATE: 20150806
